FAERS Safety Report 21222165 (Version 8)
Quarter: 2024Q1

REPORT INFORMATION
  Report Type: Spontaneous
  Country: US (occurrence: US)
  Receive Date: 20220817
  Receipt Date: 20240117
  Transmission Date: 20240410
  Serious: No
  Sender: FDA-Public Use
  Company Number: US-PFIZER INC-PV202200044310

PATIENT
  Age: 66 Year
  Sex: Female

DRUGS (2)
  1. IBRANCE [Suspect]
     Active Substance: PALBOCICLIB
     Indication: Breast cancer female
     Dosage: 125 MG, ONE TABLET ONCE DAILY WITH OR WITHOUT FOOD FOR 21 DAYS ON AND 7 DAYS OFF
     Route: 048
     Dates: start: 20220803
  2. LETROZOLE [Concomitant]
     Active Substance: LETROZOLE
     Dosage: UNK

REACTIONS (9)
  - Pruritus [Not Recovered/Not Resolved]
  - Rash [Not Recovered/Not Resolved]
  - Constipation [Not Recovered/Not Resolved]
  - Fatigue [Not Recovered/Not Resolved]
  - Alopecia [Not Recovered/Not Resolved]
  - Nocturia [Not Recovered/Not Resolved]
  - Back pain [Not Recovered/Not Resolved]
  - Stomatitis [Unknown]
  - White blood cell count decreased [Unknown]

NARRATIVE: CASE EVENT DATE: 20220101
